FAERS Safety Report 10022537 (Version 2)
Quarter: 2014Q1

REPORT INFORMATION
  Report Type: Spontaneous
  Country: US (occurrence: US)
  Receive Date: 20140319
  Receipt Date: 20140319
  Transmission Date: 20141002
  Serious: Yes (Other)
  Sender: FDA-Public Use
  Company Number: US-GE HEALTHCARE MEDICAL DIAGNOSTICS-OSCN-PR-0802S-0091

PATIENT
  Age: 47 Year
  Sex: Male

DRUGS (17)
  1. OMNISCAN [Suspect]
     Indication: CHRONIC HEPATIC FAILURE
     Route: 042
     Dates: start: 20061013, end: 20061013
  2. GADOLINIUM (UNSPECIFIED) [Suspect]
     Indication: HEPATIC CIRRHOSIS
     Route: 042
     Dates: start: 20050309, end: 20050309
  3. TACROLIMUS [Concomitant]
  4. CELLCEPT [Concomitant]
  5. METHYLPREDNISOLONE [Concomitant]
  6. BASILIXIMAB [Concomitant]
  7. LASIX [Concomitant]
  8. METFORMIN [Concomitant]
  9. PROPANOLOL [Concomitant]
  10. SPIRONOLACTONE [Concomitant]
  11. LACTULOSE [Concomitant]
  12. NEXIUM [Concomitant]
  13. EPOGEN [Concomitant]
  14. MIDODRINE [Concomitant]
  15. OCTREOTIDE [Concomitant]
  16. LEXAPRO [Concomitant]
  17. GLYBURIDE [Concomitant]

REACTIONS (1)
  - Nephrogenic systemic fibrosis [Not Recovered/Not Resolved]
